FAERS Safety Report 13125946 (Version 5)
Quarter: 2018Q3

REPORT INFORMATION
  Report Type: Spontaneous
  Country: DE (occurrence: DE)
  Receive Date: 20170118
  Receipt Date: 20180926
  Transmission Date: 20181010
  Serious: Yes (Hospitalization, Other)
  Sender: FDA-Public Use
  Company Number: DE-009507513-1701DEU006749

PATIENT
  Age: 70 Year
  Sex: Male

DRUGS (12)
  1. COLCHICINE. [Interacting]
     Active Substance: COLCHICINE
     Indication: MYALGIA
  2. MOLSIDOMINE [Concomitant]
     Active Substance: MOLSIDOMINE
  3. COLCHICINE. [Interacting]
     Active Substance: COLCHICINE
     Indication: GOUT
     Dosage: 0.5 TO 1 MG, AS REQUIRED
  4. RIVAROXABAN [Concomitant]
     Active Substance: RIVAROXABAN
  5. FUROSEMIDE. [Concomitant]
     Active Substance: FUROSEMIDE
  6. INSULIN [Concomitant]
     Active Substance: INSULIN NOS
  7. SIMVASTATIN. [Suspect]
     Active Substance: SIMVASTATIN
     Dosage: 40 MG, QD, LOW?DOSE
     Route: 048
  8. ACETYLSALICYLIC ACID [Concomitant]
     Active Substance: ASPIRIN
  9. RAMIPRIL. [Concomitant]
     Active Substance: RAMIPRIL
  10. ISOSORBIDE DINITRATE. [Concomitant]
     Active Substance: ISOSORBIDE DINITRATE
  11. PANTOPRAZOLE [Concomitant]
     Active Substance: PANTOPRAZOLE
  12. METOPROLOL. [Concomitant]
     Active Substance: METOPROLOL

REACTIONS (4)
  - Myopathy [Recovered/Resolved]
  - Rhabdomyolysis [Recovered/Resolved]
  - Drug interaction [Recovered/Resolved]
  - Acute kidney injury [Recovered/Resolved]
